FAERS Safety Report 20673544 (Version 2)
Quarter: 2022Q2

REPORT INFORMATION
  Report Type: Spontaneous
  Country: FR (occurrence: None)
  Receive Date: 20220405
  Receipt Date: 20220419
  Transmission Date: 20220720
  Serious: Yes (Hospitalization)
  Sender: FDA-Public Use
  Company Number: None

PATIENT
  Age: 36 Year
  Sex: Male

DRUGS (9)
  1. PROPOFOL [Suspect]
     Active Substance: PROPOFOL
     Indication: General anaesthesia
     Dosage: 30MG RENEWED 7 TIMES
     Route: 042
     Dates: start: 20211224, end: 20211224
  2. IOPROMIDE [Suspect]
     Active Substance: IOPROMIDE
     Indication: Computerised tomogram
     Dosage: 1DF (370 MG IOD/ML)
     Route: 042
     Dates: start: 20211222, end: 20211222
  3. PHLOROGLUCINOL [Suspect]
     Active Substance: PHLOROGLUCINOL
     Indication: Pain
     Dosage: 40 MG+40 UG/4 ML?ONE ADMINISTRATION OF 2 VIALS OF 40MG
     Route: 042
     Dates: start: 20211222, end: 20211222
  4. IBUPROFEN [Suspect]
     Active Substance: IBUPROFEN
     Indication: Pain
     Dosage: 400MG IN ONE INTAKE
     Route: 048
     Dates: start: 20211220, end: 20211220
  5. ONDANSETRON HYDROCHLORIDE [Suspect]
     Active Substance: ONDANSETRON HYDROCHLORIDE
     Indication: Nausea
     Dosage: UNIQUE DOSE OF 4 MG
     Route: 042
     Dates: start: 20211224, end: 20211224
  6. CEFUROXIME AXETIL [Suspect]
     Active Substance: CEFUROXIME AXETIL
     Indication: Infection
     Dosage: 1DF
     Route: 042
     Dates: start: 20211224, end: 20211224
  7. CEFUROXIME AXETIL [Suspect]
     Active Substance: CEFUROXIME AXETIL
     Indication: Nausea
  8. REMIFENTANIL [Suspect]
     Active Substance: REMIFENTANIL
     Indication: General anaesthesia
     Dosage: 2 UG RENEWED 4 TIMES
     Route: 042
     Dates: start: 20211224, end: 20211224
  9. DROPERIDOL [Suspect]
     Active Substance: DROPERIDOL
     Indication: Nausea
     Dosage: 1.25 MG IN UNIQUE DOSAGE
     Route: 042
     Dates: start: 20211224, end: 20211224

REACTIONS (1)
  - Fixed eruption [Recovered/Resolved]

NARRATIVE: CASE EVENT DATE: 20211224
